FAERS Safety Report 6269059-3 (Version None)
Quarter: 2009Q3

REPORT INFORMATION
  Report Type: 
  Country: None (occurrence: None)
  Receive Date: 20090715
  Receipt Date: 20090703
  Transmission Date: 20100115
  Serious: Yes (Death, Hospitalization)
  Sender: FDA-Public Use
  Company Number: JP-PFIZER INC-2009187127

PATIENT
  Age: 59 Year

DRUGS (6)
  1. SUNITINIB MALATE [Suspect]
     Indication: RENAL CELL CARCINOMA
     Dosage: 50 MG, 1X/DAY
     Route: 048
     Dates: start: 20090203, end: 20090224
  2. NORVASC [Concomitant]
     Route: 048
  3. MICARDIS [Concomitant]
     Route: 048
  4. GASTER [Concomitant]
     Route: 048
  5. DECADRON [Concomitant]
     Route: 048
  6. DEPAKENE [Concomitant]
     Route: 048

REACTIONS (2)
  - CONDITION AGGRAVATED [None]
  - PYREXIA [None]
